FAERS Safety Report 18971722 (Version 4)
Quarter: 2023Q1

REPORT INFORMATION
  Report Type: Report from Study
  Country: JP (occurrence: JP)
  Receive Date: 20210304
  Receipt Date: 20230202
  Transmission Date: 20230418
  Serious: Yes (Death, Other)
  Sender: FDA-Public Use
  Company Number: JP-SAKK-2018SA396627AA

PATIENT
  Age: 65 Year
  Sex: Male
  Weight: 68 kg

DRUGS (10)
  1. DUPILUMAB [Suspect]
     Active Substance: DUPILUMAB
     Indication: Dermatitis atopic
     Dosage: 600 MG, 1X
     Route: 058
     Dates: start: 20181212, end: 20181212
  2. CYCLOSPORINE [Concomitant]
     Active Substance: CYCLOSPORINE
     Indication: Dermatitis atopic
     Dosage: DAILY DOSE: 100 MG, SEVERAL TIMES PER WEEK
     Route: 048
     Dates: start: 20181107, end: 20181217
  3. BEPOTASTINE BESYLATE [Concomitant]
     Active Substance: BEPOTASTINE BESYLATE
     Indication: Dermatitis atopic
     Dosage: DAILY DOSE: 20 MG, SEVERAL TIMES PER DAY
     Route: 048
     Dates: start: 20180125, end: 20190110
  4. NEOMALLERMIN TR [Concomitant]
     Indication: Dermatitis atopic
     Dosage: DAILY DOSE: 12 MG, SEVERAL TIMES PER DAY
     Route: 048
     Dates: start: 20180125
  5. FAMOTIDINE [Concomitant]
     Active Substance: FAMOTIDINE
     Indication: Product used for unknown indication
     Dosage: UNK
     Route: 065
  6. ALLOPURINOL [Concomitant]
     Active Substance: ALLOPURINOL
     Indication: Product used for unknown indication
     Dosage: UNK
     Route: 065
  7. AMLODIPINE BESYLATE\IRBESARTAN [Concomitant]
     Active Substance: AMLODIPINE BESYLATE\IRBESARTAN
     Indication: Product used for unknown indication
     Dosage: UNK
     Route: 065
  8. CLOBETASOL [Concomitant]
     Active Substance: CLOBETASOL
     Indication: Dermatitis atopic
     Dosage: SEVERAL TIMES A DAY
     Route: 061
     Dates: start: 20180125
  9. TACROLIMUS [Concomitant]
     Active Substance: TACROLIMUS
     Indication: Dermatitis atopic
     Dosage: SEVERAL TIMES A DAY
     Route: 061
     Dates: start: 20180125
  10. GLYCOSAMINOGLYCANS [Concomitant]
     Active Substance: GLYCOSAMINOGLYCANS
     Indication: Dermatitis atopic
     Dosage: SEVERAL TIMES A DAY
     Route: 061
     Dates: start: 20180125

REACTIONS (4)
  - White blood cell count increased [Fatal]
  - Myelodysplastic syndrome [Fatal]
  - Inflammation [Not Recovered/Not Resolved]
  - Pyrexia [Not Recovered/Not Resolved]

NARRATIVE: CASE EVENT DATE: 20181226
